FAERS Safety Report 5134125-2 (Version None)
Quarter: 2006Q4

REPORT INFORMATION
  Report Type: 
  Country: None (occurrence: None)
  Receive Date: 20061024
  Receipt Date: 20061012
  Transmission Date: 20070319
  Serious: Yes (Death, Hospitalization)
  Sender: FDA-Public Use
  Company Number: JP-BRISTOL-MYERS SQUIBB COMPANY-13545371

PATIENT
  Age: 43 Year
  Sex: Male

DRUGS (6)
  1. ENDOXAN [Suspect]
     Indication: DIFFUSE LARGE B-CELL LYMPHOMA STAGE II
     Dates: start: 20041201
  2. CARBOPLATIN [Suspect]
     Indication: DIFFUSE LARGE B-CELL LYMPHOMA STAGE II
     Dates: start: 20041201
  3. RITUXAN [Concomitant]
     Indication: DIFFUSE LARGE B-CELL LYMPHOMA STAGE II
     Dates: start: 20041201
  4. CYMERIN [Concomitant]
     Indication: DIFFUSE LARGE B-CELL LYMPHOMA STAGE II
     Dates: start: 20041201
  5. ETOPOSIDE [Concomitant]
     Indication: DIFFUSE LARGE B-CELL LYMPHOMA STAGE II
     Dates: start: 20041201
  6. HEMATOPOETIC PROGENITOR CELLS HUMAN [Concomitant]
     Dates: start: 20041101

REACTIONS (2)
  - CARDIAC FAILURE [None]
  - RENAL FAILURE ACUTE [None]
